FAERS Safety Report 23141224 (Version 4)
Quarter: 2025Q2

REPORT INFORMATION
  Report Type: Spontaneous
  Country: ES (occurrence: ES)
  Receive Date: 20231103
  Receipt Date: 20250527
  Transmission Date: 20250717
  Serious: Yes (Other)
  Sender: CELLTRION
  Company Number: ES-CELLTRION INC.-2023ES019361

PATIENT

DRUGS (9)
  1. MVASI [Suspect]
     Active Substance: BEVACIZUMAB-AWWB
     Indication: Hereditary haemorrhagic telangiectasia
  2. BEVACIZUMAB [Suspect]
     Active Substance: BEVACIZUMAB
     Indication: Hereditary haemorrhagic telangiectasia
     Dosage: 5 MG/KG, EVERY 3.5 DAY, 4 DOSES EVERY 2 WEEKS
     Route: 065
  3. BEVACIZUMAB [Suspect]
     Active Substance: BEVACIZUMAB
     Dosage: 10 MG/KG, 1 EVERY 1 MONTH, DOSE INCREASED
     Route: 065
  4. BEVACIZUMAB [Suspect]
     Active Substance: BEVACIZUMAB
     Dosage: 5 MG/KG, EVERY 1 MONTH, MAINTENANCE REGIME
     Route: 065
  5. BEVACIZUMAB [Suspect]
     Active Substance: BEVACIZUMAB
     Route: 065
  6. AFLIBERCEPT [Suspect]
     Active Substance: AFLIBERCEPT
     Indication: Hereditary haemorrhagic telangiectasia
     Dosage: 4 MG/KG, Q2WEEKS
  7. AFLIBERCEPT [Suspect]
     Active Substance: AFLIBERCEPT
     Indication: Gastrointestinal haemorrhage
  8. WHOLE BLOOD [Concomitant]
     Active Substance: WHOLE BLOOD
     Route: 065
  9. IRON [Concomitant]
     Active Substance: IRON
     Route: 065

REACTIONS (7)
  - Atrial fibrillation [Recovered/Resolved]
  - Iron deficiency anaemia [Recovering/Resolving]
  - Heart failure with preserved ejection fraction [Unknown]
  - Tachyphylaxis [Recovering/Resolving]
  - Hereditary haemorrhagic telangiectasia [Recovering/Resolving]
  - Off label use [Unknown]
  - Drug ineffective for unapproved indication [Unknown]
